FAERS Safety Report 4720935-X (Version None)
Quarter: 2005Q3

REPORT INFORMATION
  Report Type: 
  Country: None (occurrence: None)
  Receive Date: 20050720
  Receipt Date: 20050707
  Transmission Date: 20060218
  Serious: Yes (Death, Hospitalization, Other)
  Sender: FDA-Public Use
  Company Number: 2005063495

PATIENT
  Age: 85 Year
  Sex: Male

DRUGS (3)
  1. BEXTRA [Suspect]
     Indication: BACK PAIN
     Dosage: 40 MG (40 MG, 1 IN 1 D), ORAL
     Route: 048
     Dates: end: 20050101
  2. METFORMIN HCL [Concomitant]
  3. CAPTOPRIL [Concomitant]

REACTIONS (6)
  - CARDIAC DISORDER [None]
  - DIZZINESS [None]
  - GASTRIC ULCER HAEMORRHAGE [None]
  - MALAISE [None]
  - PERIPHERAL COLDNESS [None]
  - URINARY TRACT INFECTION [None]
